FAERS Safety Report 8512329-6 (Version None)
Quarter: 2012Q3

REPORT INFORMATION
  Report Type: 
  Country: None (occurrence: None)
  Receive Date: 20120716
  Receipt Date: 20120711
  Transmission Date: 20120928
  Serious: Yes (Hospitalization)
  Sender: FDA-Public Use
  Company Number: PHHY2012BR060096

PATIENT
  Age: 84 Year
  Sex: Male

DRUGS (13)
  1. CECOTEX [Concomitant]
     Dosage: 0.4 MG, QD (AT NIGHT
  2. PANTOL [Concomitant]
     Dosage: UNK UKN, QD
  3. LEXAPRO [Concomitant]
     Dosage: 10 MG, DAILY
  4. SEROQUEL [Concomitant]
     Dosage: 50 MG, QD (NIGHT)
  5. SLOW CAR [Suspect]
     Dosage: 1 DF, DAILY
  6. PIDOMAG [Concomitant]
     Dosage: 1 DF, DAILY
  7. MINERAL OIL EMULSION [Concomitant]
     Dosage: 30 ML, TID
  8. DIOVAN [Suspect]
     Indication: BLOOD PRESSURE
  9. FOLIC ACID [Concomitant]
     Dosage: 5 MG, Q12H
  10. MUTILHO [Concomitant]
     Dosage: 10 MG, TID
  11. LUFTAL [Concomitant]
     Dosage: 60 U, Q6H
  12. SERENUS [Concomitant]
     Dosage: UNK UKN, QD
  13. METOPROLOL SUCCINATE [Concomitant]
     Dosage: 50 MG, QD

REACTIONS (3)
  - GASTROINTESTINAL DISORDER [None]
  - CEREBROVASCULAR ACCIDENT [None]
  - RENAL DISORDER [None]
